FAERS Safety Report 10036241 (Version 1)
Quarter: 2014Q1

REPORT INFORMATION
  Report Type: Report from Study
  Country: US (occurrence: US)
  Receive Date: 20140325
  Receipt Date: 20140325
  Transmission Date: 20141002
  Serious: Yes (Other)
  Sender: FDA-Public Use
  Company Number: US-BAXTER-2014BAX015252

PATIENT
  Age: 79 Year
  Sex: Male

DRUGS (1)
  1. GAMMAGARD LIQUID [Suspect]
     Indication: ERYTHEMA INFECTIOSUM
     Route: 065

REACTIONS (5)
  - Rash [Unknown]
  - Histiocytosis haematophagic [Unknown]
  - Lymphadenopathy [Unknown]
  - Thrombocytopenia [Unknown]
  - Hepatosplenomegaly [Unknown]
